FAERS Safety Report 6410476-6 (Version None)
Quarter: 2009Q4

REPORT INFORMATION
  Report Type: 
  Country: None (occurrence: None)
  Receive Date: 20091022
  Receipt Date: 20091015
  Transmission Date: 20100525
  Serious: Yes (Death, Hospitalization, Disabling, Other)
  Sender: FDA-Public Use
  Company Number: US-MERCK-0908USA00566

PATIENT
  Age: 63 Year
  Sex: Male

DRUGS (3)
  1. FOSAMAX [Suspect]
     Indication: RENAL TRANSPLANT
     Route: 048
     Dates: start: 19970701, end: 20060101
  2. IMURAN [Suspect]
     Indication: KIDNEY TRANSPLANT REJECTION
     Route: 065
  3. PREDNISONE [Suspect]
     Indication: KIDNEY TRANSPLANT REJECTION
     Route: 065

REACTIONS (18)
  - DEATH [None]
  - DYSPHAGIA [None]
  - GINGIVAL DISORDER [None]
  - GINGIVITIS [None]
  - IMPAIRED HEALING [None]
  - JAW DISORDER [None]
  - JAW FRACTURE [None]
  - LEUKOCYTOSIS [None]
  - OSTEOMYELITIS [None]
  - OSTEONECROSIS [None]
  - PNEUMONIA [None]
  - POLLAKIURIA [None]
  - RESORPTION BONE INCREASED [None]
  - SKIN LESION [None]
  - SQUAMOUS CELL CARCINOMA OF SKIN [None]
  - TOOTH DISCOLOURATION [None]
  - TRISMUS [None]
  - WEIGHT DECREASED [None]
